FAERS Safety Report 24019040 (Version 1)
Quarter: 2024Q2

REPORT INFORMATION
  Report Type: Spontaneous
  Country: US (occurrence: None)
  Receive Date: 20240627
  Receipt Date: 20240627
  Transmission Date: 20240716
  Serious: Yes (Life-Threatening, Hospitalization, Other)
  Sender: FDA-Public Use
  Company Number: US-Unichem Pharmaceuticals (USA) Inc-UCM202406-000792

PATIENT
  Age: 75 Year
  Sex: Female

DRUGS (1)
  1. PHENYTOIN SODIUM [Suspect]
     Active Substance: PHENYTOIN SODIUM
     Indication: Epilepsy
     Dosage: INFUSION RATE OF 60 MG/MINUTE

REACTIONS (6)
  - Bradyarrhythmia [Unknown]
  - Bradycardia [Unknown]
  - Hypotension [Unknown]
  - Product use issue [Unknown]
  - Drug level below therapeutic [Unknown]
  - Drug ineffective [Unknown]
